FAERS Safety Report 5486473-4 (Version None)
Quarter: 2007Q4

REPORT INFORMATION
  Report Type: 
  Country: None (occurrence: None)
  Receive Date: 20071016
  Receipt Date: 20071010
  Transmission Date: 20080405
  Serious: Yes (Life-Threatening, Hospitalization, Disabling)
  Sender: FDA-Public Use
  Company Number: B0489755A

PATIENT
  Age: 63 Year
  Sex: Male

DRUGS (12)
  1. ARIXTRA [Suspect]
     Indication: VENOUS THROMBOSIS
     Route: 058
     Dates: start: 20070913, end: 20070922
  2. PREVISCAN [Suspect]
     Indication: VENOUS THROMBOSIS
     Dates: start: 20070913, end: 20070918
  3. ESBERIVEN FORT [Concomitant]
  4. KALEORID [Concomitant]
  5. VIAGRA [Concomitant]
  6. STABLON [Concomitant]
  7. EUPRESSYL [Concomitant]
  8. IRBESARTAN [Concomitant]
  9. CELIPROLOL [Concomitant]
  10. FUROSEMIDE [Concomitant]
  11. CIPROFLOXACIN HCL [Concomitant]
     Dates: start: 20070912
  12. TARKA [Concomitant]

REACTIONS (9)
  - ALTERED STATE OF CONSCIOUSNESS [None]
  - BACK PAIN [None]
  - HAEMOGLOBIN DECREASED [None]
  - HYPERCAPNIA [None]
  - HYPOTENSION [None]
  - MELAENA [None]
  - RENAL FAILURE ACUTE [None]
  - RENAL HAEMORRHAGE [None]
  - RETROPERITONEAL HAEMATOMA [None]
